FAERS Safety Report 5821152-2 (Version None)
Quarter: 2008Q3

REPORT INFORMATION
  Report Type: 
  Country: None (occurrence: None)
  Receive Date: 20080721
  Receipt Date: 20080721
  Transmission Date: 20090109
  Serious: Yes (Disabling)
  Sender: FDA-Public Use
  Company Number: None

PATIENT
  Age: 36 Year
  Sex: Female

DRUGS (1)
  1. HUMIRA [Suspect]
     Indication: RHEUMATOID ARTHRITIS
     Dosage: 40MG EVERY 2 WEEKS SQ, ONE MONTH
     Route: 058
     Dates: start: 20080522, end: 20080619

REACTIONS (3)
  - DRUG HYPERSENSITIVITY [None]
  - INJECTION SITE SWELLING [None]
  - PALPITATIONS [None]
